FAERS Safety Report 9254751 (Version 1)
Quarter: 2013Q2

REPORT INFORMATION
  Report Type: Spontaneous
  Country: US (occurrence: US)
  Receive Date: 20130425
  Receipt Date: 20130425
  Transmission Date: 20140414
  Serious: Yes (Other)
  Sender: FDA-Public Use
  Company Number: US-SANOFI-AVENTIS-2013SA041758

PATIENT
  Age: 65 Year
  Sex: Female

DRUGS (2)
  1. ALLEGRA [Suspect]
     Indication: HYPERSENSITIVITY
     Dates: start: 201304, end: 201304
  2. ASPIRIN [Concomitant]

REACTIONS (1)
  - Deafness [Recovered/Resolved]
